FAERS Safety Report 21350362 (Version 3)
Quarter: 2022Q4

REPORT INFORMATION
  Report Type: Spontaneous
  Country: SE (occurrence: SE)
  Receive Date: 20220919
  Receipt Date: 20221007
  Transmission Date: 20230113
  Serious: No
  Sender: FDA-Public Use
  Company Number: SE-PFIZER INC-202201096912

PATIENT
  Age: 30 Year
  Sex: Female

DRUGS (2)
  1. FRAGMIN [Suspect]
     Active Substance: DALTEPARIN SODIUM
     Dosage: 5000 IU, 1X/DAY
  2. FRAGMIN [Suspect]
     Active Substance: DALTEPARIN SODIUM
     Dosage: 7500 UNK

REACTIONS (3)
  - Poor quality device used [Unknown]
  - Device issue [Unknown]
  - Liquid product physical issue [Unknown]
